FAERS Safety Report 20442348 (Version 1)
Quarter: 2022Q1

REPORT INFORMATION
  Report Type: Report from Study
  Country: BR (occurrence: BR)
  Receive Date: 20220208
  Receipt Date: 20220208
  Transmission Date: 20220424
  Serious: Yes (Other)
  Sender: FDA-Public Use
  Company Number: BR-NOVARTISPH-NVSC2022BR021508

PATIENT
  Sex: Female

DRUGS (4)
  1. LOSARTAN POTASSIUM [Suspect]
     Active Substance: LOSARTAN POTASSIUM
     Indication: Product used for unknown indication
     Dosage: STARTED 5 OR 6 YEARS AGO
     Route: 065
  2. LOSARTAN POTASSIUM [Concomitant]
     Active Substance: LOSARTAN POTASSIUM
     Indication: Product used for unknown indication
     Dosage: UNK
     Route: 065
  3. ASPIRIN [Concomitant]
     Active Substance: ASPIRIN
     Indication: Product used for unknown indication
     Dosage: (IN USE)
     Route: 065
  4. ADEFORTE [Concomitant]
     Active Substance: .ALPHA.-TOCOPHEROL, DL-\CHOLECALCIFEROL\VITAMIN A PALMITATE
     Indication: Product used for unknown indication
     Dosage: (IN USE)
     Route: 065

REACTIONS (1)
  - Seizure [Unknown]
